FAERS Safety Report 8550499-4 (Version None)
Quarter: 2012Q3

REPORT INFORMATION
  Report Type: 
  Country: None (occurrence: None)
  Receive Date: 20120730
  Receipt Date: 20120426
  Transmission Date: 20120928
  Serious: Yes (Other)
  Sender: FDA-Public Use
  Company Number: US-ASTRAZENECA-2012SE27444

PATIENT
  Age: 79 Year
  Sex: Female

DRUGS (1)
  1. VIMOVO [Suspect]
     Dosage: 500 MG/20MG BID
     Route: 048

REACTIONS (2)
  - ANAEMIA [None]
  - RENAL FAILURE ACUTE [None]
